FAERS Safety Report 5073496-2 (Version None)
Quarter: 2006Q3

REPORT INFORMATION
  Report Type: 
  Country: None (occurrence: None)
  Receive Date: 20060808
  Receipt Date: 20060619
  Transmission Date: 20061208
  Serious: Yes (Life-Threatening, Hospitalization)
  Sender: FDA-Public Use
  Company Number: PHFR2006GB02046

PATIENT
  Age: 31 Year
  Sex: Male

DRUGS (8)
  1. CLOZARIL [Suspect]
     Indication: SCHIZOPHRENIA
     Dosage: 300 MG, QD
     Route: 048
     Dates: start: 20060511
  2. ANALGESICS [Concomitant]
     Route: 065
  3. METHADONE HCL [Suspect]
     Indication: DRUG DEPENDENCE
     Dosage: 30 MG, QD
     Route: 065
  4. LAXATIVES [Concomitant]
     Indication: CONSTIPATION
     Route: 065
  5. DICLOFENAC [Suspect]
     Indication: PAIN
     Dosage: 50 MG, TID
     Route: 065
  6. ACETAMINOPHEN [Concomitant]
     Indication: PAIN
     Dosage: 1 G, TID
     Route: 065
  7. PAROXETINE HCL [Concomitant]
     Indication: DEPRESSION
     Dosage: 20 MG, QD
     Route: 065
  8. SENNA [Concomitant]
     Indication: CONSTIPATION PROPHYLAXIS
     Dosage: 2 DOSES/DAY
     Route: 065

REACTIONS (3)
  - CONSTIPATION [None]
  - LARGE INTESTINE PERFORATION [None]
  - SURGERY [None]
